FAERS Safety Report 10267732 (Version 2)
Quarter: 2014Q3

REPORT INFORMATION
  Report Type: Spontaneous
  Country: US (occurrence: US)
  Receive Date: 20140630
  Receipt Date: 20140903
  Transmission Date: 20150326
  Serious: Yes (Other)
  Sender: FDA-Public Use
  Company Number: US-BAYER-2014-095860

PATIENT
  Age: 75 Year
  Sex: Female
  Weight: 82 kg

DRUGS (6)
  1. SYNTHROID [Concomitant]
     Active Substance: LEVOTHYROXINE SODIUM
  2. BENADRYL [Concomitant]
     Active Substance: DIPHENHYDRAMINE HYDROCHLORIDE
  3. BAYER LOW DOSE [Suspect]
     Active Substance: ASPIRIN
     Indication: ISCHAEMIC HEART DISEASE PROPHYLAXIS
     Dosage: 81 MG, ONCE DAILY
     Route: 048
     Dates: start: 2012, end: 2014
  4. ONE A DAY WOMEN^S 50+ HEALTHY ADVANTAGE [Suspect]
     Active Substance: VITAMINS
     Indication: VITAMIN SUPPLEMENTATION
     Dosage: 1 DF, ONCE DAILY WITH FOOD
     Route: 048
     Dates: start: 201404
  5. LORAZEPAM. [Concomitant]
     Active Substance: LORAZEPAM
  6. TYLENOL WITH CODEINE [Concomitant]
     Active Substance: ACETAMINOPHEN\CODEINE PHOSPHATE

REACTIONS (5)
  - Haemorrhagic diathesis [Recovered/Resolved]
  - Foreign body [Recovered/Resolved]
  - Swelling face [Recovered/Resolved]
  - Blood disorder [Recovered/Resolved]
  - Throat irritation [None]

NARRATIVE: CASE EVENT DATE: 2014
